FAERS Safety Report 14070156 (Version 2)
Quarter: 2017Q4

REPORT INFORMATION
  Report Type: Report from Study
  Country: NL (occurrence: NL)
  Receive Date: 20171010
  Receipt Date: 20171204
  Transmission Date: 20180321
  Serious: Yes (Death, Hospitalization, Other)
  Sender: FDA-Public Use
  Company Number: NL-TOLMAR, INC.-2017NL013548

PATIENT
  Age: 72 Year
  Sex: Male

DRUGS (1)
  1. ELIGARD [Suspect]
     Active Substance: LEUPROLIDE ACETATE
     Indication: PROSTATE CANCER
     Dosage: 22.5 MG, Q3MONTHS
     Route: 058
     Dates: start: 20170711

REACTIONS (4)
  - Paralysis [Recovering/Resolving]
  - Prostate cancer [Fatal]
  - Prostate cancer metastatic [Unknown]
  - Gait disturbance [Recovering/Resolving]

NARRATIVE: CASE EVENT DATE: 20170918
